FAERS Safety Report 10670657 (Version 2)
Quarter: 2015Q1

REPORT INFORMATION
  Report Type: Spontaneous
  Country: JP (occurrence: None)
  Receive Date: 20141219
  Receipt Date: 20150106
  Transmission Date: 20150720
  Serious: Yes (Disabling)
  Sender: FDA-Public Use
  Company Number: JP2014JPN033508

PATIENT
  Age: 31 Year
  Sex: Male

DRUGS (9)
  1. LEXAPRO [Suspect]
     Active Substance: ESCITALOPRAM OXALATE
     Route: 048
     Dates: start: 20130604, end: 20130610
  2. COLONEL (POLYCARBOPHIL CALCIUM) [Concomitant]
     Active Substance: CALCIUM POLYCARBOPHIL
  3. PAXIL CR [Suspect]
     Active Substance: PAROXETINE HYDROCHLORIDE
     Indication: DEPRESSION
     Route: 048
     Dates: start: 20121206, end: 20121218
  4. PAXIL CR [Suspect]
     Active Substance: PAROXETINE HYDROCHLORIDE
     Indication: OBSESSIVE-COMPULSIVE DISORDER
     Route: 048
     Dates: start: 20121206, end: 20121218
  5. DESYREL [Concomitant]
     Active Substance: TRAZODONE HYDROCHLORIDE
  6. PAXIL [Suspect]
     Active Substance: PAROXETINE HYDROCHLORIDE
     Indication: OBSESSIVE-COMPULSIVE DISORDER
     Route: 048
     Dates: start: 20120521, end: 20130603
  7. PAXIL [Suspect]
     Active Substance: PAROXETINE HYDROCHLORIDE
     Indication: DEPRESSION
     Route: 048
     Dates: start: 20120521, end: 20130603
  8. TRADITIONAL CHINESE MEDICINE (TRADITIONAL CHINESE MEDICINE) [Concomitant]
  9. DEPAKENE (VALPROIC ACID) SOLUTION [Concomitant]
     Active Substance: VALPROIC ACID

REACTIONS (4)
  - Diarrhoea [None]
  - Erectile dysfunction [None]
  - Ejaculation delayed [None]
  - Sexual dysfunction [None]
